FAERS Safety Report 10085962 (Version 6)
Quarter: 2014Q3

REPORT INFORMATION
  Report Type: Spontaneous
  Country: US (occurrence: US)
  Receive Date: 20140418
  Receipt Date: 20140804
  Transmission Date: 20150326
  Serious: Yes (Congenital Anomaly, Other)
  Sender: FDA-Public Use
  Company Number: US-009507513-1404USA009181

PATIENT
  Sex: Female
  Weight: 2.25 kg

DRUGS (10)
  1. METRONIDAZOLE. [Suspect]
     Active Substance: METRONIDAZOLE
     Route: 064
  2. TRUVADA [Suspect]
     Active Substance: EMTRICITABINE\TENOFOVIR DISOPROXIL FUMARATE
     Dosage: TOTAL DAILY DOSE: 1 TAB/CAP, DAILY
     Route: 064
  3. REYATAZ [Suspect]
     Active Substance: ATAZANAVIR SULFATE
     Dosage: 300 MG/DAY
     Route: 064
     Dates: start: 20130723
  4. NORVIR [Suspect]
     Active Substance: RITONAVIR
     Dosage: 100 MG/DAY
     Route: 064
     Dates: start: 20130723
  5. PENTAMIDINE ISETHIONATE [Suspect]
     Active Substance: PENTAMIDINE ISETHIONATE
     Route: 064
  6. RETROVIR [Suspect]
     Active Substance: ZIDOVUDINE
     Dosage: COURSE 1; TOTAL DAILY DOSE: 2 MG/KG/HR
     Route: 064
     Dates: start: 20131014, end: 20131014
  7. ISENTRESS [Suspect]
     Active Substance: RALTEGRAVIR POTASSIUM
     Dosage: TOTAL DAILY DOSE: 800 MG/DAY
     Route: 064
     Dates: end: 20130723
  8. RETROVIR [Suspect]
     Active Substance: ZIDOVUDINE
     Dosage: COURSE 2: 1 MG/KG/HR
     Route: 064
     Dates: start: 20131014, end: 20131014
  9. FOLIC ACID. [Suspect]
     Active Substance: FOLIC ACID
     Indication: VITAMIN SUPPLEMENTATION
     Route: 064
  10. SULFAMETHOXAZOLE (+) TRIMETHOPRIM [Suspect]
     Active Substance: SULFAMETHOXAZOLE\TRIMETHOPRIM
     Route: 064

REACTIONS (4)
  - Atrial septal defect [Unknown]
  - Transposition of the great vessels [Unknown]
  - Foetal exposure during pregnancy [Recovered/Resolved]
  - Premature baby [Unknown]

NARRATIVE: CASE EVENT DATE: 2013
